FAERS Safety Report 6480418-6 (Version None)
Quarter: 2009Q4

REPORT INFORMATION
  Report Type: 
  Country: None (occurrence: None)
  Receive Date: 20091208
  Receipt Date: 20091203
  Transmission Date: 20100525
  Serious: Yes (Other)
  Sender: FDA-Public Use
  Company Number: CHPA2009GR22941

PATIENT
  Age: 27 Year
  Sex: Female

DRUGS (1)
  1. COMTREX UNKNOWN (NCH) [Suspect]
     Dosage: 4 DF, ONCE/SINGLE
     Dates: end: 20091101

REACTIONS (4)
  - ARTHRALGIA [None]
  - BONE PAIN [None]
  - DYSSTASIA [None]
  - RASH [None]
